FAERS Safety Report 11889665 (Version 3)
Quarter: 2016Q1

REPORT INFORMATION
  Report Type: Report from Study
  Country: US (occurrence: US)
  Receive Date: 20160105
  Receipt Date: 20160218
  Transmission Date: 20160526
  Serious: Yes (Other)
  Sender: FDA-Public Use
  Company Number: US-MEDTRONIC-1046150

PATIENT
  Age: 58 Year
  Sex: Male

DRUGS (2)
  1. BACLOFEN UNKNOWN 500 MCG/ML [Suspect]
     Active Substance: BACLOFEN
     Indication: PAIN
     Route: 037
  2. MORPHINE 10 MG/ML [Suspect]
     Active Substance: MORPHINE
     Route: 037

REACTIONS (6)
  - Nausea [Recovered/Resolved]
  - Tremor [Recovered/Resolved]
  - Drug withdrawal syndrome [Recovered/Resolved]
  - Diarrhoea [Recovered/Resolved]
  - Vomiting [Recovered/Resolved]
  - Formication [Recovered/Resolved]

NARRATIVE: CASE EVENT DATE: 20151216
